FAERS Safety Report 10401833 (Version 2)
Quarter: 2014Q4

REPORT INFORMATION
  Report Type: Spontaneous
  Country: IT (occurrence: None)
  Receive Date: 20140819
  Receipt Date: 20141112
  Transmission Date: 20150528
  Serious: Yes (Hospitalization)
  Sender: FDA-Public Use
  Company Number: SP08149

PATIENT
  Age: 25 Year
  Sex: Female

DRUGS (2)
  1. DISSENTEN [Suspect]
     Active Substance: LOPERAMIDE HYDROCHLORIDE
     Indication: GASTROENTERITIS
     Dosage: 2 DOSAGE FORMS, ONCE, ORAL
     Route: 048
     Dates: start: 20140618, end: 20140618
  2. XIFAXAN [Suspect]
     Active Substance: RIFAXIMIN
     Indication: GASTROENTERITIS
     Dosage: 400 MG (200 MG, 2 IN 1 D), ORAL
     Route: 048
     Dates: start: 20140618, end: 20140619

REACTIONS (1)
  - Drug hypersensitivity [None]

NARRATIVE: CASE EVENT DATE: 20140620
